FAERS Safety Report 15982631 (Version 2)
Quarter: 2019Q2

REPORT INFORMATION
  Report Type: Spontaneous
  Country: BR (occurrence: BR)
  Receive Date: 20190219
  Receipt Date: 20190410
  Transmission Date: 20190711
  Serious: Yes (Other)
  Sender: FDA-Public Use
  Company Number: BR-PFIZER INC-2019065728

PATIENT
  Age: 79 Year
  Sex: Female
  Weight: 44 kg

DRUGS (2)
  1. XALATAN [Suspect]
     Active Substance: LATANOPROST
     Indication: GLAUCOMA
     Dosage: 2 DF, 1X/DAY (1 DROP IN EACH EYE AT NIGHT)
     Dates: end: 2018
  2. NEOSALDINA [CAFFEINE;ISOMETHEPTENE HYDROCHLORIDE;METAMIZOLE SODIUM] [Concomitant]
     Dosage: UNK, AS NEEDED

REACTIONS (2)
  - Heart valve calcification [Not Recovered/Not Resolved]
  - Cataract [Recovering/Resolving]

NARRATIVE: CASE EVENT DATE: 2016
